FAERS Safety Report 8572255-3 (Version None)
Quarter: 2012Q3

REPORT INFORMATION
  Report Type: 
  Country: None (occurrence: None)
  Receive Date: 20120806
  Receipt Date: 20120726
  Transmission Date: 20120928
  Serious: Yes (Other)
  Sender: FDA-Public Use
  Company Number: CA-ASTRAZENECA-2012SE53007

PATIENT
  Sex: Female

DRUGS (2)
  1. PLAVIX [Concomitant]
  2. BRILINTA [Suspect]
     Route: 048

REACTIONS (1)
  - ARTERIAL RESTENOSIS [None]
